FAERS Safety Report 6199176-8 (Version None)
Quarter: 2009Q2

REPORT INFORMATION
  Report Type: 
  Country: None (occurrence: None)
  Receive Date: 20090522
  Receipt Date: 20090330
  Transmission Date: 20091009
  Serious: No
  Sender: FDA-Public Use
  Company Number: A0776168A

PATIENT
  Age: 40 Year
  Sex: Male

DRUGS (7)
  1. VERAMYST [Suspect]
     Indication: MULTIPLE ALLERGIES
     Dosage: 4SPR PER DAY
     Route: 045
     Dates: start: 20081216
  2. HUMULIN 70/30 [Concomitant]
  3. LEVEMIR [Concomitant]
  4. LONOX [Concomitant]
  5. PROBENECID [Concomitant]
  6. LOMOTIL [Concomitant]
  7. BIAXIN [Concomitant]

REACTIONS (1)
  - APHONIA [None]
